FAERS Safety Report 4321764-1 (Version None)
Quarter: 2004Q1

REPORT INFORMATION
  Report Type: 
  Country: None (occurrence: None)
  Receive Date: 20040322
  Receipt Date: 20031121
  Transmission Date: 20041129
  Serious: No
  Sender: FDA-Public Use
  Company Number: US-BRISTOL-MYERS SQUIBB COMPANY-12458865

PATIENT
  Age: 42 Year
  Sex: Female
  Weight: 59 kg

DRUGS (1)
  1. VAGISTAT-1 [Suspect]
     Indication: FUNGAL INFECTION
     Route: 067
     Dates: start: 20031120, end: 20031120

REACTIONS (3)
  - GENITAL PRURITUS FEMALE [None]
  - VAGINAL DISCHARGE [None]
  - VAGINAL SWELLING [None]
